FAERS Safety Report 6643013-1 (Version None)
Quarter: 2010Q1

REPORT INFORMATION
  Report Type: 
  Country: None (occurrence: None)
  Receive Date: 20100319
  Receipt Date: 20100309
  Transmission Date: 20100710
  Serious: Yes (Hospitalization)
  Sender: FDA-Public Use
  Company Number: B0634949B

PATIENT
  Sex: Female
  Weight: 68 kg

DRUGS (3)
  1. LAPATINIB [Suspect]
     Indication: BREAST CANCER
     Dosage: 1250MG PER DAY
     Route: 048
     Dates: start: 20100202
  2. MYOCET [Suspect]
     Indication: BREAST CANCER
     Dosage: 300MG EVERY 3 WEEKS
     Route: 042
     Dates: start: 20100202
  3. PACLITAXEL [Suspect]
     Indication: BREAST CANCER
     Dosage: 105MG EVERY 3 WEEKS
     Route: 042
     Dates: start: 20100202

REACTIONS (1)
  - NEUTROPENIA [None]
